FAERS Safety Report 7546884-X (Version None)
Quarter: 2011Q2

REPORT INFORMATION
  Report Type: 
  Country: None (occurrence: None)
  Receive Date: 20110614
  Receipt Date: 20110602
  Transmission Date: 20111010
  Serious: Yes (Hospitalization, Other)
  Sender: FDA-Public Use
  Company Number: US-TYCO HEALTHCARE/MALLINCKRODT-T201001951

PATIENT
  Sex: Female

DRUGS (5)
  1. OPTIMARK [Suspect]
  2. OMNISCAN [Suspect]
     Indication: NUCLEAR MAGNETIC RESONANCE IMAGING
     Dosage: 20 ML, SINGLE
     Dates: start: 20041221, end: 20041221
  3. OPTIMARK [Suspect]
     Indication: NUCLEAR MAGNETIC RESONANCE IMAGING
     Dosage: UNK UNK, SINGLE
     Dates: start: 20070801, end: 20070801
  4. OMNISCAN [Suspect]
     Dosage: 20 ML, SINGLE
     Dates: start: 20050214, end: 20050214
  5. OMNISCAN [Suspect]
     Dosage: 20 ML, SINGLE
     Dates: start: 20060619, end: 20060619

REACTIONS (18)
  - URINARY HESITATION [None]
  - ALOPECIA [None]
  - AORTIC STENOSIS [None]
  - URINARY TRACT INFECTION [None]
  - ARTHRALGIA [None]
  - VOMITING [None]
  - TINNITUS [None]
  - HYPERGLYCAEMIA [None]
  - HYPOAESTHESIA [None]
  - CONSTIPATION [None]
  - NEPHROGENIC SYSTEMIC FIBROSIS [None]
  - LIMB DISCOMFORT [None]
  - DYSURIA [None]
  - NAUSEA [None]
  - VISION BLURRED [None]
  - LEFT ATRIAL DILATATION [None]
  - PAIN [None]
  - BLADDER DISORDER [None]
